FAERS Safety Report 6435342-1 (Version None)
Quarter: 2009Q4

REPORT INFORMATION
  Report Type: 
  Country: None (occurrence: None)
  Receive Date: 20091106
  Receipt Date: 20091028
  Transmission Date: 20100525
  Serious: Yes (Hospitalization)
  Sender: FDA-Public Use
  Company Number: 8053865

PATIENT
  Age: 54 Year
  Sex: Male

DRUGS (6)
  1. CIMZIA [Suspect]
     Indication: CROHN'S DISEASE
     Dosage: 400 MG /M SC
     Route: 058
     Dates: start: 20090406
  2. ENOCORT [Concomitant]
  3. BACTRIM [Concomitant]
  4. PENTASA [Concomitant]
  5. SYMBICORT [Concomitant]
  6. ALBUTEROL [Concomitant]

REACTIONS (5)
  - CHILLS [None]
  - GASTROINTESTINAL INFECTION [None]
  - NAUSEA [None]
  - SMALL INTESTINAL OBSTRUCTION [None]
  - VOMITING [None]
